FAERS Safety Report 9302340 (Version 1)
Quarter: 2013Q2

REPORT INFORMATION
  Report Type: Spontaneous
  Country: TR (occurrence: None)
  Receive Date: 20130517
  Receipt Date: 20130517
  Transmission Date: 20140414
  Serious: Yes (Hospitalization)
  Sender: FDA-Public Use
  Company Number: 148042

PATIENT
  Age: 64 Year
  Sex: Female

DRUGS (1)
  1. ADRIAMYCIN (DOXORUBICIN) INJ. USP 10MG/5ML - BEDFORD LABS, INC. [Suspect]
     Indication: PLASMA CELL MYELOMA
     Dosage: 9MG/M2/DAY; CONTINUOUS IV INFUSION

REACTIONS (3)
  - Pancreatitis acute [None]
  - Pathological fracture [None]
  - Calculus urinary [None]
